FAERS Safety Report 14456863 (Version 1)
Quarter: 2018Q1

REPORT INFORMATION
  Report Type: Spontaneous
  Country: US (occurrence: US)
  Receive Date: 20180126
  Receipt Date: 20180126
  Transmission Date: 20180509
  Serious: No
  Sender: FDA-Public Use
  Company Number: None

PATIENT
  Age: 70 Year
  Sex: Female
  Weight: 50.5 kg

DRUGS (1)
  1. HUMIRA [Suspect]
     Active Substance: ADALIMUMAB
     Indication: CROHN^S DISEASE
     Dosage: 40MG/0.8ML INJECT40MG BIWEEKLY SUBCUTANEOUSLY
     Route: 058
     Dates: start: 20170417

REACTIONS (5)
  - Visual impairment [None]
  - Rash [None]
  - Pruritus [None]
  - Abdominal pain [None]
  - Fatigue [None]

NARRATIVE: CASE EVENT DATE: 20171116
